FAERS Safety Report 6472840-9 (Version None)
Quarter: 2009Q4

REPORT INFORMATION
  Report Type: 
  Country: None (occurrence: None)
  Receive Date: 20091203
  Receipt Date: 20081216
  Transmission Date: 20100525
  Serious: No
  Sender: FDA-Public Use
  Company Number: US-AMGEN-KDL324367

PATIENT
  Sex: Female

DRUGS (1)
  1. ENBREL [Suspect]
     Indication: PSORIATIC ARTHROPATHY
     Route: 058
     Dates: start: 20070101

REACTIONS (6)
  - FATIGUE [None]
  - LIP SWELLING [None]
  - OROPHARYNGEAL PAIN [None]
  - PSORIATIC ARTHROPATHY [None]
  - PYREXIA [None]
  - STOMATITIS [None]
